FAERS Safety Report 6354743-3 (Version None)
Quarter: 2009Q3

REPORT INFORMATION
  Report Type: 
  Country: None (occurrence: None)
  Receive Date: 20090909
  Receipt Date: 20090825
  Transmission Date: 20100115
  Serious: Yes (Death)
  Sender: FDA-Public Use
  Company Number: 2009AL000848

PATIENT
  Age: 46 Year
  Sex: Male
  Weight: 109.7705 kg

DRUGS (9)
  1. DIGOXIN [Suspect]
     Dosage: PO; 0.25MG, DAILY, PO
     Route: 048
     Dates: start: 20050422
  2. DIGOXIN [Suspect]
     Dosage: PO; 0.25MG, DAILY, PO
     Route: 048
     Dates: start: 20080201
  3. LISINOPRIL [Concomitant]
  4. POTASSIUM CHLORIDE [Concomitant]
  5. NEXIUM [Concomitant]
  6. MULTI-VITAMIN [Concomitant]
  7. ADVAIR HFA [Concomitant]
  8. ALBUTEROL [Concomitant]
  9. FUROSEMIDE [Concomitant]

REACTIONS (14)
  - ASTHMA [None]
  - BACK PAIN [None]
  - CARDIAC ARREST [None]
  - CARDIAC VALVE DISEASE [None]
  - CONGESTIVE CARDIOMYOPATHY [None]
  - ECONOMIC PROBLEM [None]
  - EMOTIONAL DISTRESS [None]
  - GLUCOSE TOLERANCE IMPAIRED [None]
  - INGROWING NAIL [None]
  - INJURY [None]
  - PAIN [None]
  - SCIATICA [None]
  - SEXUAL DYSFUNCTION [None]
  - SINUS BRADYCARDIA [None]
